FAERS Safety Report 10064668 (Version 1)
Quarter: 2014Q1

REPORT INFORMATION
  Report Type: Spontaneous
  Country: US (occurrence: None)
  Receive Date: 20140328
  Receipt Date: 20140328
  Transmission Date: 20141002
  Serious: No
  Sender: FDA-Public Use
  Company Number: 1000054369

PATIENT
  Age: 88 Year
  Sex: Female

DRUGS (7)
  1. LINZESS [Suspect]
     Indication: CONSTIPATION
     Route: 048
     Dates: start: 201311
  2. NAMENDA (MEMANTINE HYDROCHLORIDE) [Concomitant]
  3. GALANTAMINE [Concomitant]
  4. ATENOLOL [Concomitant]
  5. AMBIEN (ZOLPIDEM TARTRATE) [Concomitant]
  6. CRESTOR (ROSUVASTATIN CALCIUM) [Concomitant]
  7. ANASTROZOLE [Concomitant]

REACTIONS (1)
  - Anorectal discomfort [None]
